FAERS Safety Report 22206961 (Version 1)
Quarter: 2023Q2

REPORT INFORMATION
  Report Type: Spontaneous
  Country: US (occurrence: None)
  Receive Date: 20230412
  Receipt Date: 20230412
  Transmission Date: 20230722
  Serious: Yes (Other)
  Sender: FDA-Public Use
  Company Number: None

PATIENT
  Age: 70 Year
  Sex: Female

DRUGS (13)
  1. OPSUMIT [Suspect]
     Active Substance: MACITENTAN
     Indication: Pulmonary hypertension
     Dosage: 10MG QD ORAL
     Route: 048
     Dates: start: 20170105
  2. SILDENAFIL [Concomitant]
     Active Substance: SILDENAFIL
  3. REMODULIN [Concomitant]
     Active Substance: TREPROSTINIL
  4. BUMETANIDE [Concomitant]
     Active Substance: BUMETANIDE
  5. OXYCODONE [Concomitant]
     Active Substance: OXYCODONE
  6. OMEPRAZOLE [Concomitant]
     Active Substance: OMEPRAZOLE
  7. WIXELA INHUB [Concomitant]
     Active Substance: FLUTICASONE PROPIONATE\SALMETEROL XINAFOATE
  8. SPIRONOLACTONE [Concomitant]
     Active Substance: SPIRONOLACTONE
  9. TAPAZOLE [Concomitant]
     Active Substance: METHIMAZOLE
  10. METHOTREXATE [Concomitant]
     Active Substance: METHOTREXATE
  11. PREDNISONE [Concomitant]
     Active Substance: PREDNISONE
  12. CALCIUM CITRATE + D WITH MAG [Concomitant]
  13. VITAMINS [Concomitant]
     Active Substance: VITAMINS

REACTIONS (2)
  - Epistaxis [None]
  - Nasal dryness [None]

NARRATIVE: CASE EVENT DATE: 20230327
